FAERS Safety Report 8492907-3 (Version None)
Quarter: 2012Q3

REPORT INFORMATION
  Report Type: 
  Country: None (occurrence: None)
  Receive Date: 20120706
  Receipt Date: 20120629
  Transmission Date: 20120928
  Serious: Yes (Hospitalization)
  Sender: FDA-Public Use
  Company Number: US-GLAXOSMITHKLINE-A0884534A

PATIENT
  Age: 71 Year
  Sex: Male
  Weight: 93.6 kg

DRUGS (10)
  1. ALLEGRA [Concomitant]
  2. SPIRIVA [Concomitant]
  3. ADVAIR DISKUS 100/50 [Concomitant]
  4. CYMBALTA [Concomitant]
  5. TRICOR [Concomitant]
  6. GLUCOTROL [Concomitant]
  7. ZESTRIL [Concomitant]
  8. AVANDIA [Suspect]
     Indication: DIABETES MELLITUS
     Dosage: 4MG PER DAY
     Route: 048
     Dates: start: 20021201, end: 20070101
  9. METOPROLOL [Concomitant]
  10. LEVITRA [Concomitant]

REACTIONS (2)
  - CEREBROVASCULAR ACCIDENT [None]
  - TRANSIENT ISCHAEMIC ATTACK [None]
